FAERS Safety Report 26112274 (Version 1)
Quarter: 2025Q4

REPORT INFORMATION
  Report Type: Spontaneous
  Country: US (occurrence: None)
  Receive Date: 20251202
  Receipt Date: 20251202
  Transmission Date: 20260118
  Serious: Yes (Hospitalization)
  Sender: FDA-CTU
  Company Number: None

PATIENT
  Age: 93 Year
  Sex: Female

DRUGS (1)
  1. LENALIDOMIDE [Suspect]
     Active Substance: LENALIDOMIDE
     Dosage: 5MG 14 DAYS ON 7 DAYS OFF ?

REACTIONS (4)
  - Decreased appetite [None]
  - Dehydration [None]
  - Rhinovirus infection [None]
  - Renal failure [None]
